FAERS Safety Report 19612960 (Version 1)
Quarter: 2021Q3

REPORT INFORMATION
  Report Type: Other
  Country: CA (occurrence: CA)
  Receive Date: 20210727
  Receipt Date: 20210727
  Transmission Date: 20211014
  Serious: Yes (Hospitalization, Other)
  Sender: FDA-Public Use
  Company Number: CA-APOTEX-2021AP020179

PATIENT
  Age: 72 Year
  Sex: Male

DRUGS (2)
  1. LOVENOX [LEVOFLOXACIN] [Suspect]
     Active Substance: LEVOFLOXACIN
     Indication: MYOCARDIAL INFARCTION
     Dosage: 40 MILLIGRAM
     Route: 058
  2. CLOPIDOGREL [Suspect]
     Active Substance: CLOPIDOGREL BISULFATE
     Indication: MYOCARDIAL INFARCTION
     Dosage: UNK
     Route: 065

REACTIONS (2)
  - Paralysis [Unknown]
  - Spinal subdural haematoma [Unknown]
